FAERS Safety Report 4689258-1 (Version None)
Quarter: 2005Q2

REPORT INFORMATION
  Report Type: 
  Country: None (occurrence: None)
  Receive Date: 20050613
  Receipt Date: 20050310
  Transmission Date: 20051028
  Serious: Yes (Hospitalization, Other)
  Sender: FDA-Public Use
  Company Number: US-MERCK-0503USA02280

PATIENT
  Age: 53 Year
  Sex: Female
  Weight: 98 kg

DRUGS (10)
  1. VIOXX [Suspect]
     Indication: MONARTHRITIS
     Route: 048
     Dates: start: 19990801, end: 20040101
  2. VICODIN [Concomitant]
     Route: 065
  3. PHENTERMINE [Concomitant]
     Route: 065
  4. ZOCOR [Concomitant]
     Route: 065
  5. NEXIUM [Concomitant]
     Route: 065
  6. LAMISIL [Concomitant]
     Route: 065
  7. NYSTATIN [Concomitant]
     Route: 065
  8. LOTREL [Concomitant]
     Route: 065
  9. FIORICET TABLETS [Concomitant]
     Route: 065
  10. ARTHROTEC [Concomitant]
     Route: 065

REACTIONS (25)
  - ANAEMIA POSTOPERATIVE [None]
  - BACK PAIN [None]
  - CHEST PAIN [None]
  - CHRONIC OBSTRUCTIVE PULMONARY DISEASE [None]
  - CORONARY ARTERY ATHEROSCLEROSIS [None]
  - CORONARY ARTERY DISEASE [None]
  - DIABETES MELLITUS [None]
  - DIZZINESS [None]
  - DYSPNOEA [None]
  - EMOTIONAL DISTRESS [None]
  - HYPERSENSITIVITY [None]
  - HYPOAESTHESIA [None]
  - HYPOPERFUSION [None]
  - INTERVERTEBRAL DISC PROTRUSION [None]
  - LUMBAR RADICULOPATHY [None]
  - MENTAL DISORDER [None]
  - MYOCARDIAL INFARCTION [None]
  - MYOCARDIAL ISCHAEMIA [None]
  - NAUSEA [None]
  - PARAESTHESIA [None]
  - PEPTIC ULCER [None]
  - PULMONARY EMBOLISM [None]
  - THROMBOSIS [None]
  - TRANSIENT ISCHAEMIC ATTACK [None]
  - VENOUS THROMBOSIS LIMB [None]
